FAERS Safety Report 9499888 (Version 1)
Quarter: 2013Q3

REPORT INFORMATION
  Report Type: Report from Study
  Country: CA (occurrence: CA)
  Receive Date: 20130905
  Receipt Date: 20130905
  Transmission Date: 20140515
  Serious: Yes (Other)
  Sender: FDA-Public Use
  Company Number: CA-JNJFOC-20130900611

PATIENT
  Age: 43 Year
  Sex: Male
  Weight: 73.48 kg

DRUGS (4)
  1. REMICADE [Suspect]
     Indication: CROHN^S DISEASE
     Route: 042
     Dates: start: 20110413
  2. IMURAN [Concomitant]
     Route: 048
  3. PAXIL [Concomitant]
     Route: 048
  4. RABEPRAZOLE [Concomitant]
     Route: 048

REACTIONS (1)
  - Iron deficiency [Not Recovered/Not Resolved]
